FAERS Safety Report 20162326 (Version 2)
Quarter: 2021Q4

REPORT INFORMATION
  Report Type: Report from Study
  Country: TR (occurrence: TR)
  Receive Date: 20211208
  Receipt Date: 20211220
  Transmission Date: 20220303
  Serious: Yes (Death)
  Sender: FDA-Public Use
  Company Number: TR-TEVA-2021-TR-1984905

PATIENT
  Sex: Male

DRUGS (7)
  1. ETOPOSIDE [Suspect]
     Active Substance: ETOPOSIDE
     Indication: Primitive neuroectodermal tumour
     Route: 065
  2. CISPLATIN [Suspect]
     Active Substance: CISPLATIN
     Indication: Primitive neuroectodermal tumour
     Route: 065
  3. LOMUSTINE [Suspect]
     Active Substance: LOMUSTINE
     Indication: Primitive neuroectodermal tumour
     Route: 065
  4. PROCARBAZINE [Suspect]
     Active Substance: PROCARBAZINE
     Indication: Primitive neuroectodermal tumour
     Route: 065
  5. VINCRISTINE [Suspect]
     Active Substance: VINCRISTINE
     Indication: Primitive neuroectodermal tumour
     Route: 065
  6. NIMOTUZUMAB [Suspect]
     Active Substance: NIMOTUZUMAB
     Indication: Primitive neuroectodermal tumour
     Dosage: DURING FIRST 12 WEEKS
     Route: 042
     Dates: start: 20120302
  7. NIMOTUZUMAB [Suspect]
     Active Substance: NIMOTUZUMAB
     Dosage: EVERY ALTERNATE WEEK
     Route: 042

REACTIONS (3)
  - Aplastic anaemia [Fatal]
  - Anaemia [Fatal]
  - Off label use [Unknown]
